FAERS Safety Report 4734132-5 (Version None)
Quarter: 2005Q3

REPORT INFORMATION
  Report Type: 
  Country: None (occurrence: None)
  Receive Date: 20050729
  Receipt Date: 20050718
  Transmission Date: 20060218
  Serious: Yes (Other)
  Sender: FDA-Public Use
  Company Number: 2005097598

PATIENT
  Age: 47 Year
  Sex: Female
  Weight: 45.3597 kg

DRUGS (13)
  1. ZYVOX [Suspect]
     Indication: STAPHYLOCOCCAL INFECTION
     Dosage: 1200 MG (600 MG, 2 IN 1 D), ORAL
     Route: 048
     Dates: start: 20050609
  2. LEVBID (HYOSCYAMINE SULFATE) [Concomitant]
  3. ELAVIL [Concomitant]
  4. ADVAIR (FLUTICASONE PROPIONATE, SALMETEROL XINAFOATE) [Concomitant]
  5. MAXAIR [Concomitant]
  6. BOTOX (BOTULINUM TOXIN TYPE A) [Concomitant]
  7. TOPAMAX [Concomitant]
  8. CELEXA [Concomitant]
  9. WELLBUTRIN XL [Concomitant]
  10. ALL OTHER THERAPEUTIC PRODUCTS (ALL OTHER THERAPEUTIC PRODUCTS) [Concomitant]
  11. IMMUNOGLOBULIN G HUMAN (IMMUNOGLOBULIN G HUMAN) [Concomitant]
  12. ACIDOPHILUS (LACTOBACILLUS ACIDOPHILUS) [Concomitant]
  13. IMODIUM [Concomitant]

REACTIONS (17)
  - ABDOMINAL DISCOMFORT [None]
  - ACNE [None]
  - CANDIDIASIS [None]
  - DIARRHOEA [None]
  - DYSPEPSIA [None]
  - DYSPHAGIA [None]
  - GINGIVAL SWELLING [None]
  - GLOSSODYNIA [None]
  - HEART RATE INCREASED [None]
  - MOUTH ULCERATION [None]
  - OEDEMA MOUTH [None]
  - ORAL CANDIDIASIS [None]
  - RASH [None]
  - SWELLING FACE [None]
  - THIRST [None]
  - URTICARIA [None]
  - WEIGHT INCREASED [None]
